FAERS Safety Report 8372498-8 (Version None)
Quarter: 2012Q2

REPORT INFORMATION
  Report Type: 
  Country: None (occurrence: None)
  Receive Date: 20120521
  Receipt Date: 20120510
  Transmission Date: 20120825
  Serious: Yes (Hospitalization)
  Sender: FDA-Public Use
  Company Number: PHHO2012US007233

PATIENT
  Sex: Female
  Weight: 55 kg

DRUGS (8)
  1. PROMETHAZINE [Concomitant]
     Indication: COUGH
     Dosage: UNK
     Dates: start: 20110101
  2. VALSARTAN [Suspect]
     Indication: HYPERTENSION
     Dosage: 320 MG, QD
     Route: 048
     Dates: start: 20111201, end: 20120321
  3. CODEINE SULFATE [Concomitant]
     Indication: COUGH
     Dosage: 6.25 MG, PRN
     Route: 048
     Dates: start: 20110101
  4. OMEPRAZOLE [Concomitant]
     Indication: GASTROOESOPHAGEAL REFLUX DISEASE
     Dosage: 20 MG, QD
     Route: 048
     Dates: start: 20080101
  5. TRIAMCINOLONE [Concomitant]
     Indication: BACK PAIN
     Dosage: 80 MG, Q3MO
     Route: 030
     Dates: start: 20111108
  6. NAPROXEN [Concomitant]
     Indication: BACK PAIN
     Dosage: 220 MG, PRN
     Route: 048
     Dates: start: 20111126
  7. GLUCOSAMINE [Concomitant]
     Indication: PROPHYLAXIS
     Dosage: 750/ 600 1 IN 1 DAY
     Route: 048
     Dates: start: 20111102
  8. CALCIUM [Concomitant]
     Indication: PROPHYLAXIS
     Dosage: 600 MG, QD
     Route: 048
     Dates: start: 20100101

REACTIONS (1)
  - CEREBROVASCULAR ACCIDENT [None]
